FAERS Safety Report 11866285 (Version 1)
Quarter: 2015Q4

REPORT INFORMATION
  Report Type: Spontaneous
  Country: US (occurrence: US)
  Receive Date: 20151223
  Receipt Date: 20151223
  Transmission Date: 20160305
  Serious: Yes (Death, Other)
  Sender: FDA-Public Use
  Company Number: US-TAKEDA-TPA2011A06511

PATIENT

DRUGS (9)
  1. ACTOS [Suspect]
     Active Substance: PIOGLITAZONE HYDROCHLORIDE
     Dosage: 30 MG, UNK
     Route: 048
     Dates: start: 20020208, end: 2004
  2. DIABETA [Concomitant]
     Active Substance: GLYBURIDE
     Dosage: 5 MG, UNK
     Route: 065
     Dates: start: 2000
  3. GLUCOTROL [Concomitant]
     Active Substance: GLIPIZIDE
     Dosage: 5 MG, UNK
     Route: 065
     Dates: start: 2011
  4. LANTUS [Concomitant]
     Active Substance: INSULIN GLARGINE
     Indication: DIABETES MELLITUS
     Route: 065
     Dates: start: 2005
  5. ACTOS [Suspect]
     Active Substance: PIOGLITAZONE HYDROCHLORIDE
     Indication: TYPE 2 DIABETES MELLITUS
     Dosage: 15 MG, UNK
     Route: 048
     Dates: start: 20011005, end: 20020208
  6. METFORMIN [Concomitant]
     Active Substance: METFORMIN HYDROCHLORIDE
     Dosage: 850 MG, UNK
     Route: 065
     Dates: start: 2002
  7. GLUCOPHAGE [Concomitant]
     Active Substance: METFORMIN HYDROCHLORIDE
     Dosage: 850 MG, UNK
     Route: 065
     Dates: start: 1999, end: 2001
  8. NOVALOG [Concomitant]
     Indication: DIABETES MELLITUS
     Route: 065
     Dates: start: 2005
  9. ACTOS [Suspect]
     Active Substance: PIOGLITAZONE HYDROCHLORIDE
     Dosage: 45 MG, UNK
     Route: 048
     Dates: start: 2004, end: 2007

REACTIONS (2)
  - Bladder cancer [Unknown]
  - Death [Fatal]

NARRATIVE: CASE EVENT DATE: 2006
